FAERS Safety Report 9569079 (Version 1)
Quarter: 2013Q3

REPORT INFORMATION
  Report Type: Spontaneous
  Country: US (occurrence: US)
  Receive Date: 20130930
  Receipt Date: 20130930
  Transmission Date: 20140515
  Serious: No
  Sender: FDA-Public Use
  Company Number: US-AMGEN-USASP2013059327

PATIENT
  Age: 67 Year
  Sex: Male
  Weight: 119.73 kg

DRUGS (5)
  1. ENBREL [Suspect]
     Indication: PRODUCT USED FOR UNKNOWN INDICATION
     Dosage: 50 MG, QWK
     Route: 065
  2. ZYRTEC ALLERGY [Concomitant]
     Dosage: 10 MG, UNK
     Route: 048
  3. RANITIDINE [Concomitant]
     Dosage: 75 MG, UNK
     Route: 048
  4. FLONASE                            /00908302/ [Concomitant]
     Dosage: 0.05 %, UNK
  5. ASPIRIN [Concomitant]
     Dosage: 325 MG, UNK
     Route: 048

REACTIONS (1)
  - Skin infection [Recovering/Resolving]
